FAERS Safety Report 6300810-X (Version None)
Quarter: 2009Q3

REPORT INFORMATION
  Report Type: 
  Country: None (occurrence: None)
  Receive Date: 20090807
  Receipt Date: 20090803
  Transmission Date: 20100115
  Serious: Yes (Life-Threatening)
  Sender: FDA-Public Use
  Company Number: FR-BRISTOL-MYERS SQUIBB COMPANY-14726632

PATIENT
  Age: 36 Year
  Sex: Female

DRUGS (12)
  1. SUSTIVA [Suspect]
     Indication: HIV INFECTION
     Dosage: 1 DF = 1 TABS;05-MAY-2009 TAKEN 1 IN THE EVENING
     Dates: start: 20090503, end: 20090516
  2. BACTRIM [Suspect]
     Indication: ANTIFUNGAL PROPHYLAXIS
     Dosage: 1 DF = 1 TABS
     Route: 048
     Dates: start: 20090425, end: 20090516
  3. TRUVADA [Suspect]
     Indication: HIV INFECTION
     Dosage: 1 DF = 200 MG/ 245 MG (1 TABS)
     Route: 048
  4. FUZEON [Suspect]
     Indication: HIV INFECTION
     Dosage: 1 DF = 90 MG/ ML (INFUSION);05MAY09 TAKEN 1 IN THE MORNING AND 1 IN THE EVENING
     Route: 058
  5. RIFADIN [Suspect]
     Indication: DISSEMINATED TUBERCULOSIS
     Dosage: 2 CAPSULE DAILY;03MAY09 600MG GIVEN.STOPPED ON 16MAY09 RESTARTED ON 25MAY09
     Route: 048
     Dates: start: 20090425
  6. MYAMBUTOL [Suspect]
     Indication: DISSEMINATED TUBERCULOSIS
     Dosage: 3 TABS DAILY;3 IN THE MORNING;ALSO TAKEN ON 25MAY09
     Route: 048
     Dates: start: 20090425
  7. PIRILENE [Suspect]
     Indication: DISSEMINATED TUBERCULOSIS
     Dosage: 3 TABS DAILY;25APR09-500MG(3 IN THE MORNING)
     Route: 048
  8. RIMIFON [Suspect]
     Indication: DISSEMINATED TUBERCULOSIS
     Dosage: 2 TABLETS DAILY
     Dates: start: 20090425
  9. SINGULAIR [Suspect]
     Indication: IMMUNE RECONSTITUTION SYNDROME
     Dosage: ONE TABLET DAILY
     Route: 048
     Dates: start: 20090511, end: 20090516
  10. IMOVANE [Suspect]
     Indication: INSOMNIA
     Dosage: ONE TABLET DAILY
     Dates: start: 20090427, end: 20090516
  11. ANSATIPINE [Concomitant]
     Indication: DISSEMINATED TUBERCULOSIS
     Dosage: 1 DF - 150(UNITS NOT SPECIFIED)1 IN THE MORNING
     Dates: end: 20090503
  12. ZECLAR [Concomitant]
     Indication: DISSEMINATED TUBERCULOSIS
     Dosage: 1 INTAKE IN THE MORNING
     Dates: end: 20090503

REACTIONS (1)
  - HEPATITIS FULMINANT [None]
